FAERS Safety Report 16614347 (Version 5)
Quarter: 2019Q3

REPORT INFORMATION
  Report Type: Spontaneous
  Country: US (occurrence: US)
  Receive Date: 20190723
  Receipt Date: 20190809
  Transmission Date: 20191004
  Serious: No
  Sender: FDA-Public Use
  Company Number: US-LEO PHARMA-322979

PATIENT
  Age: 61 Year
  Sex: Male

DRUGS (1)
  1. PICATO [Suspect]
     Active Substance: INGENOL MEBUTATE
     Indication: PIGMENTATION DISORDER
     Route: 061
     Dates: start: 20190715, end: 20190716

REACTIONS (10)
  - Vision blurred [Not Recovered/Not Resolved]
  - Application site pain [Not Recovered/Not Resolved]
  - Anxiety [Not Recovered/Not Resolved]
  - Stress [Not Recovered/Not Resolved]
  - Application site erythema [Not Recovered/Not Resolved]
  - Application site discolouration [Not Recovered/Not Resolved]
  - Product use in unapproved indication [Unknown]
  - Application site vesicles [Not Recovered/Not Resolved]
  - Incorrect dose administered [Unknown]
  - Application site swelling [Not Recovered/Not Resolved]

NARRATIVE: CASE EVENT DATE: 20190716
